FAERS Safety Report 9336270 (Version 2)
Quarter: 2013Q3

REPORT INFORMATION
  Report Type: Spontaneous
  Country: US (occurrence: US)
  Receive Date: 20130607
  Receipt Date: 20130705
  Transmission Date: 20140515
  Serious: No
  Sender: FDA-Public Use
  Company Number: US-009507513-1305USA017359

PATIENT
  Age: 76 Year
  Sex: Female

DRUGS (2)
  1. DULERA [Suspect]
     Indication: ASTHMA
     Dosage: 100MCG/5MCG/FREQUENCY UNSPECIFIED
     Route: 055
     Dates: start: 201005
  2. PROVENTIL [Suspect]
     Dosage: UNK
     Route: 055

REACTIONS (9)
  - Respiratory tract congestion [Not Recovered/Not Resolved]
  - Cough [Recovered/Resolved]
  - Wheezing [Not Recovered/Not Resolved]
  - Cough [Not Recovered/Not Resolved]
  - Wheezing [Not Recovered/Not Resolved]
  - Dry throat [Recovered/Resolved]
  - Increased upper airway secretion [Recovered/Resolved]
  - Dry throat [Not Recovered/Not Resolved]
  - Increased upper airway secretion [Not Recovered/Not Resolved]
